FAERS Safety Report 23296155 (Version 3)
Quarter: 2024Q1

REPORT INFORMATION
  Report Type: Spontaneous
  Country: US (occurrence: US)
  Receive Date: 20231214
  Receipt Date: 20240227
  Transmission Date: 20240410
  Serious: No
  Sender: FDA-Public Use
  Company Number: US-SA-SAC20231211000130

PATIENT
  Age: 51 Year
  Sex: Female

DRUGS (1)
  1. DUPIXENT [Suspect]
     Active Substance: DUPILUMAB
     Indication: Asthma
     Dosage: 200 MG, QOW
     Route: 058
     Dates: start: 20231108

REACTIONS (10)
  - Rash pruritic [Recovered/Resolved]
  - Sneezing [Unknown]
  - Rhinorrhoea [Unknown]
  - Skin irritation [Unknown]
  - Arthritis [Unknown]
  - Pain [Unknown]
  - Muscle rigidity [Unknown]
  - Condition aggravated [Unknown]
  - Erythema [Unknown]
  - Incorrect dose administered [Unknown]

NARRATIVE: CASE EVENT DATE: 20230101
